FAERS Safety Report 11968675 (Version 1)
Quarter: 2016Q1

REPORT INFORMATION
  Report Type: Spontaneous
  Country: US (occurrence: US)
  Receive Date: 20160128
  Receipt Date: 20160128
  Transmission Date: 20160526
  Serious: No
  Sender: FDA-Public Use
  Company Number: US-ZYDUS-007764

PATIENT
  Sex: Male

DRUGS (1)
  1. RIBAVIRIN. [Suspect]
     Active Substance: RIBAVIRIN
     Indication: PRODUCT USED FOR UNKNOWN INDICATION

REACTIONS (7)
  - Nausea [Unknown]
  - Pain [Unknown]
  - Skin irritation [Unknown]
  - Neuropathy peripheral [Unknown]
  - Depression [Unknown]
  - Suicidal ideation [Unknown]
  - Stomatitis [Unknown]
